FAERS Safety Report 8048171-2 (Version None)
Quarter: 2012Q1

REPORT INFORMATION
  Report Type: 
  Country: None (occurrence: None)
  Receive Date: 20120113
  Receipt Date: 20120113
  Transmission Date: 20120608
  Serious: Yes (Other)
  Sender: FDA-Public Use
  Company Number: None

PATIENT
  Age: 48 Year
  Sex: Female
  Weight: 85 kg

DRUGS (2)
  1. RIBASPHERE [Suspect]
     Indication: HEPATITIS C
     Dosage: RIBASPHERE500MG TWICE A DAY PO
     Route: 048
     Dates: start: 20111203, end: 20120101
  2. PEGASYS [Suspect]
     Indication: HEPATITIS C
     Dosage: PEGASYS 180MCG WEEKLY SQ
     Route: 058
     Dates: start: 20111203, end: 20120101

REACTIONS (6)
  - FATIGUE [None]
  - GAIT DISTURBANCE [None]
  - ANAEMIA [None]
  - DECREASED APPETITE [None]
  - SPEECH DISORDER [None]
  - LEUKOPENIA [None]
